FAERS Safety Report 7966363-5 (Version None)
Quarter: 2011Q4

REPORT INFORMATION
  Report Type: 
  Country: None (occurrence: None)
  Receive Date: 20111208
  Receipt Date: 20111129
  Transmission Date: 20120403
  Serious: Yes (Hospitalization)
  Sender: FDA-Public Use
  Company Number: AU-COVIDIEN/TYCO HEALTHCARE/MALLINCKRODT-T201102816

PATIENT
  Sex: Female

DRUGS (3)
  1. OXYCONTIN [Concomitant]
     Indication: BACK PAIN
     Dosage: UNK, TID
  2. EXALGO [Suspect]
     Indication: BACK PAIN
     Dosage: 32 MG, UNK
     Route: 048
  3. EXALGO [Suspect]
     Dosage: 16 MG, UNK
     Route: 048

REACTIONS (2)
  - SYNCOPE [None]
  - CARDIO-RESPIRATORY ARREST [None]
